FAERS Safety Report 26064866 (Version 1)
Quarter: 2025Q4

REPORT INFORMATION
  Report Type: Spontaneous
  Country: CO (occurrence: CO)
  Receive Date: 20251119
  Receipt Date: 20251119
  Transmission Date: 20260117
  Serious: Yes (Other)
  Sender: ROCHE
  Company Number: CO-ROCHE-10000437232

PATIENT
  Sex: Male

DRUGS (1)
  1. HEMLIBRA [Suspect]
     Active Substance: EMICIZUMAB-KXWH
     Indication: Factor VIII deficiency
     Dosage: DOSE AND FREQUENCY WERE NOT REPORTED?USE OF LOW DOSE ACCORDING TO THE LABEL
     Route: 065

REACTIONS (1)
  - Haemarthrosis [Unknown]
